FAERS Safety Report 6687693-3 (Version None)
Quarter: 2010Q2

REPORT INFORMATION
  Report Type: 
  Country: None (occurrence: None)
  Receive Date: 20100419
  Receipt Date: 20100415
  Transmission Date: 20101027
  Serious: Yes (Other)
  Sender: FDA-Public Use
  Company Number: IT-BRISTOL-MYERS SQUIBB COMPANY-15065220

PATIENT
  Age: 46 Year
  Sex: Female

DRUGS (2)
  1. BARACLUDE [Suspect]
     Dosage: STOPPED AND REINTRODUCED WITH A DOSAGE REDUCTION (0.5 MG/72HOURS)
  2. LAMIVUDINE [Suspect]
     Indication: HEPATITIS B
     Dates: start: 20091201

REACTIONS (6)
  - BRADYKINESIA [None]
  - BRADYPHRENIA [None]
  - DIALYSIS [None]
  - RENAL FAILURE ACUTE [None]
  - SOMNOLENCE [None]
  - SPEECH DISORDER [None]
